FAERS Safety Report 7144855-9 (Version None)
Quarter: 2010Q4

REPORT INFORMATION
  Report Type: 
  Country: None (occurrence: None)
  Receive Date: 20101123
  Receipt Date: 20101111
  Transmission Date: 20110411
  Serious: Yes (Hospitalization)
  Sender: FDA-Public Use
  Company Number: 2010MA004490

PATIENT
  Age: 56 Year
  Sex: Female

DRUGS (1)
  1. ACYCLOVIR [Suspect]
     Indication: HERPES ZOSTER
     Dosage: 800 MG; X5; PO
     Route: 048
     Dates: start: 20101006, end: 20101010

REACTIONS (10)
  - COLD SWEAT [None]
  - CONFUSIONAL STATE [None]
  - DIARRHOEA [None]
  - DRUG HYPERSENSITIVITY [None]
  - GASTROINTESTINAL DISORDER [None]
  - INCOHERENT [None]
  - LOSS OF CONSCIOUSNESS [None]
  - MALAISE [None]
  - NAUSEA [None]
  - PRESYNCOPE [None]
